FAERS Safety Report 23093000 (Version 1)
Quarter: 2023Q4

REPORT INFORMATION
  Report Type: Spontaneous
  Country: GB (occurrence: GB)
  Receive Date: 20231021
  Receipt Date: 20231021
  Transmission Date: 20240109
  Serious: Yes (Hospitalization, Other)
  Sender: FDA-Public Use
  Company Number: GB-ROCHE-2655907

PATIENT
  Age: 73 Year
  Sex: Female
  Weight: 46.8 kg

DRUGS (66)
  1. DOXORUBICIN [Suspect]
     Active Substance: DOXORUBICIN
     Indication: Follicular lymphoma
     Dosage: DATE OF THE MOST RECENT DOSE PRIOR TO FEBRILE NEUTROPENIA, ALANINE AMINO TRANSFERASE ELEVATED AND, U
     Route: 042
     Dates: start: 20200708
  2. DOXORUBICIN [Suspect]
     Active Substance: DOXORUBICIN
     Route: 065
  3. PREDNISOLONE [Suspect]
     Active Substance: PREDNISOLONE
     Indication: Follicular lymphoma
     Dosage: MOST RECENT DOSE (50 MG) PRIOR TO BOTH AE: 02/AUG/2020,MOST RECENT DOSE OF PREDNISOLONE (50 MG) P, U
     Route: 048
     Dates: start: 20200708
  4. VINCRISTINE [Suspect]
     Active Substance: VINCRISTINE
     Indication: Follicular lymphoma
     Dosage: MOST RECENT DOSE PRIOR TO FEBRILE NEUTROPENIA, ALANINE AMINO TRANSFERASE ELEVATED 1.4 MG/M2 (52 M, U
     Route: 042
     Dates: start: 20200708
  5. VINCRISTINE [Suspect]
     Active Substance: VINCRISTINE
     Route: 065
  6. CYCLOPHOSPHAMIDE [Suspect]
     Active Substance: CYCLOPHOSPHAMIDE
     Indication: Follicular lymphoma
     Dosage: DATE OF THE MOST RECENT DOSE PRIOR TO FEBRILE NEUTROPENIA, ALANINE AMINO TRANSFERASE ELEVATED AND, U
     Route: 042
     Dates: start: 20200708
  7. CYCLOPHOSPHAMIDE [Suspect]
     Active Substance: CYCLOPHOSPHAMIDE
     Route: 065
  8. GLOFITAMAB [Suspect]
     Active Substance: GLOFITAMAB
     Indication: Follicular lymphoma
     Dosage: MOST RECENT DOSE OF RO7082859, 0.5 MG (TOTAL VOLUME 25ML) PRIOR TO NEUTROPENIA: 02/SEP/2020 AT 2, UN
     Route: 042
     Dates: start: 20200805
  9. GLOFITAMAB [Suspect]
     Active Substance: GLOFITAMAB
     Route: 065
  10. RITUXIMAB [Suspect]
     Active Substance: RITUXIMAB
     Indication: Follicular lymphoma
     Dosage: MOST RECENT DOSE OF RITUXIMAB PRIOR TO FEBRILE NEUTROPENIA, ALANINE AMINO TRANSFERASE ELEVATED AN, U
     Route: 041
     Dates: start: 20200708
  11. RITUXIMAB [Suspect]
     Active Substance: RITUXIMAB
     Route: 065
  12. TOCILIZUMAB [Suspect]
     Active Substance: TOCILIZUMAB
     Indication: Cytokine release syndrome
     Dosage: START DATE OF MOST RECENT DOSE OF STUDY DRUG PRIOR TO SAE 01/OCT/2020 2:56 PM; UNIT DOSE: 400MG
     Route: 041
     Dates: start: 20201001
  13. TOCILIZUMAB [Suspect]
     Active Substance: TOCILIZUMAB
     Dosage: DURATION: 1 DAYS
     Route: 041
     Dates: start: 20201002, end: 20201002
  14. TOCILIZUMAB [Suspect]
     Active Substance: TOCILIZUMAB
     Dosage: MOST RECENT DOSE OF TOCILIZUMAB (400 MG) PRIOR TO AE 03/SEP/2020 07:56 PM TO 07:57 PM, END TIME:, UN
     Route: 041
     Dates: start: 20200805
  15. TOCILIZUMAB [Suspect]
     Active Substance: TOCILIZUMAB
     Route: 065
  16. ACYCLOVIR [Concomitant]
     Active Substance: ACYCLOVIR
     Indication: Antiviral prophylaxis
     Dosage: DURATION: 60 DAYS
     Dates: start: 20200608, end: 20200806
  17. CALCIUM CARBONATE\CHOLECALCIFEROL [Concomitant]
     Active Substance: CALCIUM CARBONATE\CHOLECALCIFEROL
     Indication: Osteoporosis
     Dates: start: 2018
  18. ALLOPURINOL [Concomitant]
     Active Substance: ALLOPURINOL
     Indication: Adverse drug reaction
     Dosage: DURATION: 18 DAYS
     Dates: start: 20200720, end: 20200806
  19. CALCIUM [Concomitant]
     Active Substance: CALCIUM
     Indication: Product used for unknown indication
     Dates: start: 2018
  20. CHLORPHENIRAMINE MALEATE [Concomitant]
     Active Substance: CHLORPHENIRAMINE MALEATE
     Indication: Prophylaxis
     Dosage: UNIT DOSE: 10MG, DURATION: 1 DAYS
     Route: 042
     Dates: start: 20200729, end: 20200729
  21. CHLORPHENIRAMINE MALEATE [Concomitant]
     Active Substance: CHLORPHENIRAMINE MALEATE
     Dosage: UNIT DOSE: 10MG, DURATION: 1 DAYS
     Route: 042
     Dates: start: 20200923, end: 20200923
  22. CHLORPHENIRAMINE MALEATE [Concomitant]
     Active Substance: CHLORPHENIRAMINE MALEATE
     Dosage: UNIT DOSE: 10MG, DURATION: 32 DAYS
     Route: 042
     Dates: start: 20200729, end: 20200829
  23. CHLORPHENIRAMINE MALEATE [Concomitant]
     Active Substance: CHLORPHENIRAMINE MALEATE
     Dosage: NEXT SINGLE DOSE ON: 08/AUG/2020; UNIT DOSE: 10MG, DURATION: 1 DAYS
     Route: 042
     Dates: start: 20200805, end: 20200805
  24. CHLORPHENIRAMINE MALEATE [Concomitant]
     Active Substance: CHLORPHENIRAMINE MALEATE
     Dosage: UNIT DOSE: 10MG, DURATION: 1 DAYS
     Route: 042
     Dates: start: 20201014, end: 20201014
  25. CHLORPHENIRAMINE MALEATE [Concomitant]
     Active Substance: CHLORPHENIRAMINE MALEATE
     Dosage: NEXT SINGLE DOSE ON: 08/AUG/2020; UNIT DOSE: 10MG, DURATION: 1 DAYS
     Route: 042
     Dates: start: 20200902, end: 20200902
  26. CHLORPHENIRAMINE MALEATE [Concomitant]
     Active Substance: CHLORPHENIRAMINE MALEATE
     Dosage: UNIT DOSE: 10MG, DURATION: 1 DAYS
     Route: 042
     Dates: start: 20201111, end: 20201111
  27. CHLORPHENIRAMINE MALEATE [Concomitant]
     Active Substance: CHLORPHENIRAMINE MALEATE
     Dosage: NEXT SINGLE DOSE ON: 08/AUG/2020; UNIT DOSE: 10MG, DURATION: 1 DAYS
     Route: 042
     Dates: start: 20200808, end: 20200808
  28. CHLORPHENIRAMINE MALEATE [Concomitant]
     Active Substance: CHLORPHENIRAMINE MALEATE
     Dosage: UNIT DOSE: 10MG, DURATION: 1 DAYS
     Route: 042
     Dates: start: 20200826, end: 20200826
  29. CHLORPHENIRAMINE MALEATE [Concomitant]
     Active Substance: CHLORPHENIRAMINE MALEATE
     Dosage: UNIT DOSE: 10MG, DURATION: 1 DAYS
     Route: 042
     Dates: start: 20200930, end: 20200930
  30. CHLORPHENIRAMINE MALEATE [Concomitant]
     Active Substance: CHLORPHENIRAMINE MALEATE
     Dosage: UNIT DOSE: 10MG, DURATION: 1 DAYS
     Route: 042
     Dates: start: 20201104, end: 20201104
  31. AMOXICILLIN\CLAVULANATE POTASSIUM [Concomitant]
     Active Substance: AMOXICILLIN\CLAVULANATE POTASSIUM
     Indication: Pyrexia
     Dosage: DURATION: 5 DAYS
     Dates: start: 20200719, end: 20200723
  32. DEXAMETHASONE [Concomitant]
     Active Substance: DEXAMETHASONE
     Indication: Product used for unknown indication
     Dosage: UNIT DOSE: 20MG, DURATION: 1 DAYS
     Route: 042
     Dates: start: 20200930, end: 20200930
  33. DOMPERIDONE [Concomitant]
     Active Substance: DOMPERIDONE
     Indication: Prophylaxis of nausea and vomiting
     Dates: start: 20200708
  34. DOMPERIDONE [Concomitant]
     Active Substance: DOMPERIDONE
     Indication: Vomiting
     Dates: start: 20201001
  35. ENOXAPARIN [Concomitant]
     Active Substance: ENOXAPARIN
     Indication: Embolism
     Dosage: DURATION: 30 DAYS
     Dates: start: 20200728, end: 20200826
  36. FILGRASTIM [Concomitant]
     Active Substance: FILGRASTIM
     Indication: Neutropenia
     Dosage: ONGOING: NO; DURATION: 1 DAYS
     Dates: start: 20200718, end: 20200718
  37. FILGRASTIM [Concomitant]
     Active Substance: FILGRASTIM
     Dates: start: 20200713
  38. CALCIUM CHLORIDE\POTASSIUM CHLORIDE\SODIUM CHLORIDE\SODIUM LACTATE [Concomitant]
     Active Substance: CALCIUM CHLORIDE\POTASSIUM CHLORIDE\SODIUM CHLORIDE\SODIUM LACTATE
     Indication: Pyrexia
     Dosage: DURATION: 2 DAYS
     Dates: start: 20200715, end: 20200716
  39. HYDROCORTISONE [Concomitant]
     Active Substance: HYDROCORTISONE
     Indication: Pyrexia
     Dosage: UNIT DOSE: 100MG
     Route: 042
  40. IBUPROFEN [Concomitant]
     Active Substance: IBUPROFEN
     Indication: Back pain
     Dosage: DURATION: 9 DAYS
     Dates: start: 20201003, end: 20201011
  41. LANSOPRAZOLE [Concomitant]
     Active Substance: LANSOPRAZOLE
     Indication: Gastrointestinal disorder prophylaxis
     Dates: start: 202003
  42. MOMETASONE [Concomitant]
     Active Substance: MOMETASONE
     Indication: Product used for unknown indication
     Dates: start: 202003
  43. MORPHINE [Concomitant]
     Active Substance: MORPHINE
     Indication: Back pain
     Dosage: DURATION: 7 DAYS
     Dates: start: 20201001, end: 20201007
  44. MORPHINE SULFATE [Concomitant]
     Active Substance: MORPHINE SULFATE
     Indication: Pain in extremity
     Dosage: DURATION: 4 DAYS
     Route: 048
     Dates: start: 20201007, end: 20201010
  45. MORPHINE SULFATE [Concomitant]
     Active Substance: MORPHINE SULFATE
     Indication: Groin pain
     Dosage: DURATION: 7 DAYS
     Route: 048
     Dates: start: 20201001, end: 20201007
  46. ONDANSETRON [Concomitant]
     Active Substance: ONDANSETRON
     Indication: Prophylaxis of nausea and vomiting
     Dates: start: 20201001
  47. ONDANSETRON [Concomitant]
     Active Substance: ONDANSETRON
     Indication: Vomiting
     Dates: start: 20200708
  48. OXYGEN [Concomitant]
     Active Substance: OXYGEN
     Indication: Hypoxia
     Dosage: DURATION: 1 DAYS
     Dates: start: 20200903, end: 20200903
  49. OXYGEN [Concomitant]
     Active Substance: OXYGEN
     Dosage: DURATION: 1 DAYS
     Dates: start: 20201001, end: 20201001
  50. ACETAMINOPHEN [Concomitant]
     Active Substance: ACETAMINOPHEN
     Indication: Pyrexia
     Dosage: UNIT DOSE: 1000MG, DURATION: 1 DAYS
     Route: 048
     Dates: start: 20201104, end: 20201104
  51. ACETAMINOPHEN [Concomitant]
     Active Substance: ACETAMINOPHEN
     Indication: Pain in extremity
     Dosage: NEXT SINGLE DOSE ON 08/AUG/2020; UNIT DOSE: 1000MG, DURATION: 1 DAYS
     Route: 048
     Dates: start: 20200805, end: 20200805
  52. ACETAMINOPHEN [Concomitant]
     Active Substance: ACETAMINOPHEN
     Indication: Back pain
     Dosage: UNIT DOSE: 1000MG, DURATION: 1 DAYS
     Route: 048
     Dates: start: 20200805, end: 20200805
  53. ACETAMINOPHEN [Concomitant]
     Active Substance: ACETAMINOPHEN
     Indication: Groin pain
     Dosage: UNIT DOSE: 1000MG, DURATION: 1 DAYS
     Route: 048
     Dates: start: 20200808, end: 20200808
  54. ACETAMINOPHEN [Concomitant]
     Active Substance: ACETAMINOPHEN
     Dosage: UNIT DOSE: 1000MG, DURATION: 1 DAYS
     Route: 048
     Dates: start: 20200923, end: 20200923
  55. ACETAMINOPHEN [Concomitant]
     Active Substance: ACETAMINOPHEN
     Dosage: DURATION: 6 DAYS
     Dates: start: 20200715, end: 20200720
  56. ACETAMINOPHEN [Concomitant]
     Active Substance: ACETAMINOPHEN
     Dosage: UNIT DOSE: 1000MG, DURATION: 1 DAYS
     Route: 048
     Dates: start: 20201111, end: 20201111
  57. ACETAMINOPHEN [Concomitant]
     Active Substance: ACETAMINOPHEN
     Dosage: DURATION: 1 DAYS
     Dates: start: 20201001, end: 20201001
  58. ACETAMINOPHEN [Concomitant]
     Active Substance: ACETAMINOPHEN
     Dosage: ONGOING: YES,
     Dates: start: 20201001
  59. ACETAMINOPHEN [Concomitant]
     Active Substance: ACETAMINOPHEN
     Dosage: UNIT DOSE: 1000MG, DURATION: 1 DAYS
     Route: 048
     Dates: start: 20200902, end: 20200902
  60. ACETAMINOPHEN [Concomitant]
     Active Substance: ACETAMINOPHEN
     Dosage: UNIT DOSE: 1000MG, DURATION: 1 DAYS
     Route: 048
     Dates: start: 20200930, end: 20200930
  61. ACETAMINOPHEN [Concomitant]
     Active Substance: ACETAMINOPHEN
     Dosage: UNIT DOSE: 1000MG, DURATION: 1 DAYS
     Route: 048
     Dates: start: 20201014, end: 20201014
  62. ACETAMINOPHEN [Concomitant]
     Active Substance: ACETAMINOPHEN
     Dosage: UNIT DOSE: 1000MG, DURATION: 1 DAYS
     Route: 048
     Dates: start: 20200826, end: 20200826
  63. ACETAMINOPHEN [Concomitant]
     Active Substance: ACETAMINOPHEN
     Dosage: UNIT DOSE: 1000MG, DURATION: 1 DAYS
     Route: 048
     Dates: start: 20200729, end: 20200729
  64. PIPERACILLIN AND TAZOBACTAM [Concomitant]
     Active Substance: PIPERACILLIN SODIUM\TAZOBACTAM SODIUM
     Indication: Pyrexia
     Dosage: DURATION: 5 DAYS
     Dates: start: 20200715, end: 20200719
  65. RASBURICASE [Concomitant]
     Active Substance: RASBURICASE
     Indication: Prophylaxis
     Dosage: DURATION: 2 DAYS
     Dates: start: 20200708, end: 20200709
  66. RIVAROXABAN [Concomitant]
     Active Substance: RIVAROXABAN
     Indication: Embolism
     Dosage: DURATION: 157 DAYS
     Dates: start: 20200826, end: 20210129

REACTIONS (7)
  - Cytokine release syndrome [Recovered/Resolved]
  - Alanine aminotransferase increased [Recovered/Resolved]
  - Cytokine release syndrome [Recovered/Resolved]
  - Febrile neutropenia [Recovered/Resolved]
  - Neutropenia [Recovered/Resolved]
  - Neutropenia [Recovered/Resolved]
  - Neutropenia [Recovered/Resolved]

NARRATIVE: CASE EVENT DATE: 20200805
